FAERS Safety Report 5784264-8 (Version None)
Quarter: 2008Q2

REPORT INFORMATION
  Report Type: 
  Country: None (occurrence: None)
  Receive Date: 20080620
  Receipt Date: 20080620
  Transmission Date: 20081010
  Serious: Yes (Life-Threatening)
  Sender: FDA-Public Use
  Company Number: None

PATIENT
  Age: 60 Year
  Sex: Female

DRUGS (8)
  1. ENBREL [Suspect]
     Indication: RHEUMATOID ARTHRITIS
     Dosage: 50 MG WEEKLY SQ
     Route: 058
     Dates: start: 20080101
  2. METHOTREXATE [Concomitant]
  3. SULFASALAZINE [Concomitant]
  4. PLAQUENIL [Concomitant]
  5. PREDNISONE 50MG TAB [Concomitant]
  6. CELEBREX [Concomitant]
  7. FOLIC ACID [Concomitant]
  8. MINOCYCLINE HCL [Concomitant]

REACTIONS (1)
  - METASTASES TO LYMPH NODES [None]
